FAERS Safety Report 4285808-8 (Version None)
Quarter: 2004Q1

REPORT INFORMATION
  Report Type: 
  Country: None (occurrence: None)
  Receive Date: 20040203
  Receipt Date: 20040129
  Transmission Date: 20041129
  Serious: Yes (Life-Threatening, Hospitalization, Other)
  Sender: FDA-Public Use
  Company Number: HQWYE551323JAN04

PATIENT
  Age: 2 Year
  Sex: Female
  Weight: 13.5 kg

DRUGS (3)
  1. MYLOTARG [Suspect]
     Indication: ACUTE MYELOID LEUKAEMIA
     Dosage: 1.8 MG 1X PER 1 DAY, INTRAVENOUS
     Route: 042
     Dates: start: 20031216, end: 20031216
  2. CYTARABINE [Suspect]
     Dosage: 60 MG OVER 30 MINUTES TIMES 16 DOSES, INTRAVENOUS
     Route: 042
     Dates: start: 20031216
  3. UNSPECIFIED ANTIBIOTIC [Concomitant]

REACTIONS (13)
  - ALANINE AMINOTRANSFERASE INCREASED [None]
  - ALPHA HAEMOLYTIC STREPTOCOCCAL INFECTION [None]
  - ASPARTATE AMINOTRANSFERASE INCREASED [None]
  - BILIRUBIN CONJUGATED INCREASED [None]
  - BLOOD BILIRUBIN INCREASED [None]
  - CATHETER RELATED INFECTION [None]
  - HAEMOGLOBIN DECREASED [None]
  - PLATELET COUNT DECREASED [None]
  - PLEURAL EFFUSION [None]
  - RESPIRATORY DISORDER [None]
  - RESPIRATORY DISTRESS [None]
  - STREPTOCOCCAL SEPSIS [None]
  - VENOOCCLUSIVE DISEASE [None]
